FAERS Safety Report 9427029 (Version 1)
Quarter: 2013Q3

REPORT INFORMATION
  Report Type: Report from Study
  Country: US (occurrence: US)
  Receive Date: 20130730
  Receipt Date: 20130730
  Transmission Date: 20140515
  Serious: No
  Sender: FDA-Public Use
  Company Number: US-ABBOTT-12P-163-1003877-00

PATIENT
  Sex: Male
  Weight: 64.92 kg

DRUGS (6)
  1. NIASPAN (COATED) [Suspect]
     Indication: LOW DENSITY LIPOPROTEIN INCREASED
     Route: 048
  2. NIASPAN (COATED) [Suspect]
     Indication: DRUG INTOLERANCE
  3. UNKNOWN BLOOD THINNER MEDICATION [Concomitant]
     Indication: ANTICOAGULANT THERAPY
     Route: 048
  4. COQ10 [Concomitant]
     Indication: PRODUCT USED FOR UNKNOWN INDICATION
     Route: 048
  5. FISH OIL [Concomitant]
     Indication: PRODUCT USED FOR UNKNOWN INDICATION
     Route: 048
  6. OTHER UNKNOWN MEDICATIONS [Concomitant]
     Indication: PRODUCT USED FOR UNKNOWN INDICATION

REACTIONS (2)
  - Facial pain [Recovered/Resolved]
  - Toothache [Recovered/Resolved]
